FAERS Safety Report 8437155-8 (Version None)
Quarter: 2012Q2

REPORT INFORMATION
  Report Type: 
  Country: None (occurrence: None)
  Receive Date: 20120614
  Receipt Date: 20120418
  Transmission Date: 20120825
  Serious: No
  Sender: FDA-Public Use
  Company Number: US-AMGEN-USASP2012019581

PATIENT
  Age: 78 Year
  Sex: Female
  Weight: 60 kg

DRUGS (5)
  1. FISH OIL [Concomitant]
     Dosage: 1200 MG, QD
     Route: 048
  2. MULTI-VITAMIN [Concomitant]
     Dosage: UNK UNK, QD
     Route: 048
  3. PROLIA [Suspect]
     Indication: OSTEOPOROSIS POSTMENOPAUSAL
     Dosage: 60 MG, Q6MO
     Route: 058
     Dates: start: 20101220, end: 20120215
  4. CALCIUM [Concomitant]
  5. ASPIRIN [Concomitant]
     Dosage: 81 MG, QD
     Route: 048
     Dates: start: 20050526

REACTIONS (7)
  - RASH PRURITIC [None]
  - ARTHRITIS [None]
  - NASAL CONGESTION [None]
  - RASH GENERALISED [None]
  - ARTHRALGIA [None]
  - INSOMNIA [None]
  - PAIN IN EXTREMITY [None]
